FAERS Safety Report 6314973-3 (Version None)
Quarter: 2009Q3

REPORT INFORMATION
  Report Type: 
  Country: None (occurrence: None)
  Receive Date: 20090819
  Receipt Date: 20090811
  Transmission Date: 20100115
  Serious: Yes (Hospitalization)
  Sender: FDA-Public Use
  Company Number: B0581602A

PATIENT
  Sex: Female
  Weight: 109 kg

DRUGS (3)
  1. LAPATINIB [Suspect]
     Indication: BREAST CANCER
     Dosage: 1500MG PER DAY
     Route: 048
     Dates: start: 20090609, end: 20090626
  2. TAMOXIFEN CITRATE [Concomitant]
     Indication: BREAST CANCER
     Dosage: 20MG PER DAY
     Route: 048
     Dates: start: 20090512
  3. LEVOTHYROXINE SODIUM [Concomitant]
     Dosage: 100MCG PER DAY
     Route: 048
     Dates: start: 20030101

REACTIONS (4)
  - DIARRHOEA [None]
  - PERIORBITAL OEDEMA [None]
  - RASH [None]
  - RASH MACULO-PAPULAR [None]
